FAERS Safety Report 9849066 (Version 1)
Quarter: 2014Q1

REPORT INFORMATION
  Report Type: Spontaneous
  Country: US (occurrence: None)
  Receive Date: 20140127
  Receipt Date: 20140127
  Transmission Date: 20141002
  Serious: Yes (Other)
  Sender: FDA-Public Use
  Company Number: None

PATIENT
  Age: 22 Year
  Sex: Female
  Weight: 80.74 kg

DRUGS (1)
  1. MONTELUKAST [Suspect]
     Indication: ASTHMA
     Route: 048

REACTIONS (13)
  - Nausea [None]
  - Decreased appetite [None]
  - Crying [None]
  - Depressed mood [None]
  - Disturbance in attention [None]
  - Self-injurious ideation [None]
  - Pain [None]
  - Thinking abnormal [None]
  - Fatigue [None]
  - Asthenia [None]
  - Nausea [None]
  - Feelings of worthlessness [None]
  - Abnormal behaviour [None]
